FAERS Safety Report 17502151 (Version 1)
Quarter: 2020Q1

REPORT INFORMATION
  Report Type: Spontaneous
  Country: US (occurrence: US)
  Receive Date: 20200305
  Receipt Date: 20200305
  Transmission Date: 20200409
  Serious: No
  Sender: FDA-Public Use
  Company Number: US-VERTEX PHARMACEUTICALS-2020-003069

PATIENT
  Age: 18 Year
  Sex: Female

DRUGS (5)
  1. SYMDEKO [Suspect]
     Active Substance: IVACAFTOR\TEZACAFTOR
     Indication: CYSTIC FIBROSIS
     Dosage: 100MG TEZACAFTOR/150MG IVACAFTOR; 150MG IVACAFTOR (FREQUENCY UNKNOWN)
     Route: 048
     Dates: start: 20180629, end: 20200128
  2. FAMOTIDINE. [Concomitant]
     Active Substance: FAMOTIDINE
  3. LEVALBUTEROL [LEVOSALBUTAMOL HYDROCHLORIDE] [Concomitant]
     Active Substance: LEVALBUTEROL HYDROCHLORIDE
  4. PULMOZYME [Concomitant]
     Active Substance: DORNASE ALFA
  5. TOBI PODHALER [Concomitant]
     Active Substance: TOBRAMYCIN

REACTIONS (1)
  - Influenza [Recovered/Resolved]

NARRATIVE: CASE EVENT DATE: 20200120
